FAERS Safety Report 6658727-7 (Version None)
Quarter: 2010Q1

REPORT INFORMATION
  Report Type: 
  Country: None (occurrence: None)
  Receive Date: 20100330
  Receipt Date: 20100322
  Transmission Date: 20100710
  Serious: Yes (Other)
  Sender: FDA-Public Use
  Company Number: PHEH2010US03248

PATIENT
  Age: 75 Year
  Sex: Female

DRUGS (1)
  1. ZOMETA [Suspect]
     Indication: MULTIPLE MYELOMA
     Dosage: 4 MG ONCE MONTHLY
     Route: 042
     Dates: start: 20090701, end: 20091001

REACTIONS (3)
  - OSTEONECROSIS [None]
  - PAIN IN JAW [None]
  - RENAL IMPAIRMENT [None]
